FAERS Safety Report 20816785 (Version 1)
Quarter: 2022Q2

REPORT INFORMATION
  Report Type: Spontaneous
  Country: PT (occurrence: PT)
  Receive Date: 20220512
  Receipt Date: 20220512
  Transmission Date: 20220721
  Serious: Yes (Hospitalization, Other)
  Sender: FDA-Public Use
  Company Number: PT-009507513-2205PRT001298

PATIENT
  Age: 50 Year
  Sex: Male

DRUGS (4)
  1. RALTEGRAVIR POTASSIUM [Suspect]
     Active Substance: RALTEGRAVIR POTASSIUM
     Indication: HIV infection
  2. MEROPENEM [Suspect]
     Active Substance: MEROPENEM
     Indication: Klebsiella infection
  3. RITONAVIR [Concomitant]
     Active Substance: RITONAVIR
     Indication: HIV infection
  4. DARUNAVIR [Concomitant]
     Active Substance: DARUNAVIR
     Indication: HIV infection

REACTIONS (10)
  - Gastric varices haemorrhage [Unknown]
  - Cirrhosis alcoholic [Unknown]
  - Embolism venous [Unknown]
  - Klebsiella bacteraemia [Unknown]
  - Nephropathy toxic [Unknown]
  - Neurotoxicity [Unknown]
  - Chronic hepatitis C [Unknown]
  - CD4 lymphocytes abnormal [Unknown]
  - Viral rhinitis [Unknown]
  - Drug ineffective [Unknown]
